FAERS Safety Report 7002112-5 (Version None)
Quarter: 2010Q3

REPORT INFORMATION
  Report Type: 
  Country: None (occurrence: None)
  Receive Date: 20100920
  Receipt Date: 20100604
  Transmission Date: 20110219
  Serious: Yes (Other)
  Sender: FDA-Public Use
  Company Number: US-ASTRAZENECA-2009UW03140

PATIENT
  Age: 371 Month
  Sex: Female
  Weight: 183.7 kg

DRUGS (13)
  1. SEROQUEL [Suspect]
     Indication: MENTAL DISORDER
     Route: 048
     Dates: start: 20030301
  2. SEROQUEL [Suspect]
     Route: 048
     Dates: start: 20030312
  3. SEROQUEL [Suspect]
     Dosage: TAKE 1 T PO IN THE MORNING AND TWO TS HS
     Route: 048
     Dates: start: 20040212
  4. SEROQUEL [Suspect]
     Route: 048
     Dates: start: 20060719
  5. SEROQUEL [Suspect]
     Dosage: TAKE 1/2 T PO BID
     Route: 048
     Dates: start: 20080827
  6. LEXAPRO [Concomitant]
     Dates: start: 20030312
  7. CLONAZEPAM [Concomitant]
     Route: 048
     Dates: start: 20060719
  8. TOPROL-XL [Concomitant]
     Route: 048
     Dates: start: 20060722
  9. HYDROCODONE BITARTRATE AND ACETAMINOPHEN [Concomitant]
     Dosage: 10/500
     Route: 048
     Dates: start: 20060805
  10. PAROXETINE HCL [Concomitant]
     Route: 048
     Dates: start: 20060816
  11. TRILEPTAL [Concomitant]
     Route: 048
     Dates: start: 20060816
  12. LYRICA [Concomitant]
     Route: 048
     Dates: start: 20060821
  13. PROCHLORPERAZINE [Concomitant]
     Route: 048
     Dates: start: 20061103

REACTIONS (2)
  - DIABETES MELLITUS [None]
  - PANCREATITIS [None]
